FAERS Safety Report 6435209-9 (Version None)
Quarter: 2009Q4

REPORT INFORMATION
  Report Type: 
  Country: None (occurrence: None)
  Receive Date: 20091110
  Receipt Date: 20091030
  Transmission Date: 20100525
  Serious: No
  Sender: FDA-Public Use
  Company Number: US-B.I. PHARMACEUTICALS,INC./RIDGEFIELD-2009-BP-12761BP

PATIENT
  Sex: Female

DRUGS (2)
  1. ZANTAC 150 [Suspect]
     Indication: GASTROOESOPHAGEAL REFLUX DISEASE
     Dosage: 600 MG
     Route: 048
     Dates: start: 20090915, end: 20091001
  2. LOW THYROID MEDICATION [Concomitant]
     Indication: HYPOTHYROIDISM

REACTIONS (6)
  - ABDOMINAL PAIN UPPER [None]
  - ABDOMINAL RIGIDITY [None]
  - BACK PAIN [None]
  - MUSCLE SPASMS [None]
  - OESOPHAGEAL PAIN [None]
  - OESOPHAGEAL SPASM [None]
